FAERS Safety Report 10283995 (Version 1)
Quarter: 2014Q3

REPORT INFORMATION
  Report Type: Spontaneous
  Country: FR (occurrence: FR)
  Receive Date: 20140708
  Receipt Date: 20140708
  Transmission Date: 20150326
  Serious: Yes (Death, Hospitalization, Other)
  Sender: FDA-Public Use
  Company Number: FR-PFIZER INC-2014188594

PATIENT
  Age: 90 Year
  Sex: Male

DRUGS (4)
  1. ULTRAVIST [Concomitant]
     Active Substance: IOPROMIDE
     Dosage: UNK
     Dates: start: 20140107, end: 20140107
  2. CORDARONE [Suspect]
     Active Substance: AMIODARONE HYDROCHLORIDE
     Indication: EXTRASYSTOLES
     Dosage: 100 MG, DAILY
     Route: 048
     Dates: start: 201101, end: 20140108
  3. PERINDOPRIL [Concomitant]
     Active Substance: PERINDOPRIL
  4. FUROSEMIDE. [Concomitant]
     Active Substance: FUROSEMIDE

REACTIONS (11)
  - Cardiopulmonary failure [Unknown]
  - Pleural effusion [Unknown]
  - Malnutrition [Unknown]
  - Chest pain [Unknown]
  - Urine iodine increased [Unknown]
  - Splenic infarction [Recovered/Resolved]
  - Hyperglycaemia [Unknown]
  - Hypoalbuminaemia [Unknown]
  - Hyperthyroidism [Fatal]
  - Atrial fibrillation [Fatal]
  - Cardiac failure [Unknown]

NARRATIVE: CASE EVENT DATE: 20140107
